FAERS Safety Report 13424652 (Version 1)
Quarter: 2017Q2

REPORT INFORMATION
  Report Type: Spontaneous
  Country: US (occurrence: US)
  Receive Date: 20170410
  Receipt Date: 20170410
  Transmission Date: 20170830
  Serious: No
  Sender: FDA-Public Use
  Company Number: US-ELI_LILLY_AND_COMPANY-US201704002035

PATIENT
  Sex: Male

DRUGS (2)
  1. HUMALOG [Suspect]
     Active Substance: INSULIN LISPRO
     Indication: TYPE 1 DIABETES MELLITUS
     Dosage: UNK U, SLIDING SCALE
     Route: 058
     Dates: start: 20140825
  2. HUMALOG [Suspect]
     Active Substance: INSULIN LISPRO
     Dosage: UNK U, SLIDING SCALE
     Route: 058
     Dates: start: 20170313

REACTIONS (1)
  - Blood glucose increased [Recovered/Resolved]
